FAERS Safety Report 19846027 (Version 1)
Quarter: 2021Q3

REPORT INFORMATION
  Report Type: Spontaneous
  Country: US (occurrence: US)
  Receive Date: 20210917
  Receipt Date: 20210917
  Transmission Date: 20211014
  Serious: Yes (Life-Threatening)
  Sender: FDA-Public Use
  Company Number: None

PATIENT
  Age: 62 Year
  Sex: Female
  Weight: 98.9 kg

DRUGS (1)
  1. REMDESIVIR. [Suspect]
     Active Substance: REMDESIVIR
     Indication: COVID-19 PNEUMONIA
     Dates: start: 20210913, end: 20210916

REACTIONS (3)
  - Heart rate irregular [None]
  - Electrocardiogram QT prolonged [None]
  - Sinus bradycardia [None]

NARRATIVE: CASE EVENT DATE: 20210916
